FAERS Safety Report 10682740 (Version 1)
Quarter: 2014Q4

REPORT INFORMATION
  Report Type: Spontaneous
  Country: US (occurrence: None)
  Receive Date: 20141229
  Receipt Date: 20141229
  Transmission Date: 20150529
  Serious: Yes (Other)
  Sender: FDA-Public Use
  Company Number: None

PATIENT
  Age: 55 Year
  Sex: Male
  Weight: 90.72 kg

DRUGS (1)
  1. GABAPENTIN. [Suspect]
     Active Substance: GABAPENTIN
     Indication: BIPOLAR DISORDER
     Dosage: 4 PILLS
     Route: 048

REACTIONS (15)
  - Crying [None]
  - Back pain [None]
  - Dizziness [None]
  - Gait disturbance [None]
  - Cognitive disorder [None]
  - Tremor [None]
  - Headache [None]
  - Coordination abnormal [None]
  - Anxiety [None]
  - Suicidal ideation [None]
  - Depression [None]
  - Panic attack [None]
  - Memory impairment [None]
  - Paranoia [None]
  - Vision blurred [None]

NARRATIVE: CASE EVENT DATE: 20141219
